FAERS Safety Report 5719950-9 (Version None)
Quarter: 2008Q2

REPORT INFORMATION
  Report Type: 
  Country: None (occurrence: None)
  Receive Date: 20080425
  Receipt Date: 20080425
  Transmission Date: 20081010
  Serious: Yes (Hospitalization)
  Sender: FDA-Public Use
  Company Number: None

PATIENT
  Sex: Female
  Weight: 125.45 kg

DRUGS (2)
  1. CARBOPLATIN [Suspect]
     Dosage: 787 MG
  2. TAXOL [Suspect]
     Dosage: 350 MG

REACTIONS (20)
  - ALANINE AMINOTRANSFERASE INCREASED [None]
  - ASPARTATE AMINOTRANSFERASE INCREASED [None]
  - BLOOD ALBUMIN DECREASED [None]
  - BLOOD GLUCOSE INCREASED [None]
  - BLOOD KETONE BODY INCREASED [None]
  - BLOOD UREA DECREASED [None]
  - BODY TEMPERATURE DECREASED [None]
  - CARBON DIOXIDE DECREASED [None]
  - CHEST PAIN [None]
  - DIZZINESS [None]
  - HAEMOGLOBIN DECREASED [None]
  - HEART RATE INCREASED [None]
  - LOSS OF CONSCIOUSNESS [None]
  - NAUSEA [None]
  - SPINAL COMPRESSION FRACTURE [None]
  - SYNCOPE [None]
  - URINARY TRACT INFECTION [None]
  - URINE LEUKOCYTE ESTERASE POSITIVE [None]
  - VOMITING [None]
  - WHITE BLOOD CELL COUNT DECREASED [None]
